FAERS Safety Report 4654008-1 (Version None)
Quarter: 2005Q2

REPORT INFORMATION
  Report Type: 
  Country: None (occurrence: None)
  Receive Date: 20050504
  Receipt Date: 20050422
  Transmission Date: 20051028
  Serious: Yes (Other)
  Sender: FDA-Public Use
  Company Number: 05-0042PO FOLLOW-UP 1

PATIENT
  Age: 26 Year
  Sex: Female
  Weight: 42 kg

DRUGS (1)
  1. PONTAL (MEFENAMIC ACID) [Suspect]
     Indication: PYREXIA
     Dosage: 250 MG, TID, PO
     Route: 048
     Dates: start: 20050216

REACTIONS (6)
  - ABASIA [None]
  - ARTHRALGIA [None]
  - FURUNCLE [None]
  - MYALGIA [None]
  - PAIN [None]
  - PAIN IN EXTREMITY [None]
